FAERS Safety Report 19056702 (Version 1)
Quarter: 2021Q1

REPORT INFORMATION
  Report Type: Spontaneous
  Country: US (occurrence: US)
  Receive Date: 20210325
  Receipt Date: 20210325
  Transmission Date: 20210420
  Serious: Yes (Other)
  Sender: FDA-Public Use
  Company Number: US-PFM-2021-02061

PATIENT
  Age: 75 Year
  Sex: Female

DRUGS (15)
  1. PROPRANOLOL HYDROCHLORIDE. [Suspect]
     Active Substance: PROPRANOLOL HYDROCHLORIDE
     Indication: OFF LABEL USE
  2. PRIMIDONE. [Concomitant]
     Active Substance: PRIMIDONE
     Indication: PARKINSONISM
     Dates: start: 201501
  3. QUETIAPINE. [Concomitant]
     Active Substance: QUETIAPINE
     Dates: start: 201101
  4. AMANTADINE. [Concomitant]
     Active Substance: AMANTADINE HYDROCHLORIDE
     Indication: RESTING TREMOR
     Dates: start: 201501
  5. PRAMIPEXOLE. [Concomitant]
     Active Substance: PRAMIPEXOLE
     Indication: POSTURAL TREMOR
     Dates: start: 201501
  6. SINEMET [Concomitant]
     Active Substance: CARBIDOPA\LEVODOPA
     Indication: RESTING TREMOR
     Dates: start: 201501
  7. PROPRANOLOL HYDROCHLORIDE. [Suspect]
     Active Substance: PROPRANOLOL HYDROCHLORIDE
     Indication: PARKINSONISM
  8. PROPRANOLOL HYDROCHLORIDE. [Suspect]
     Active Substance: PROPRANOLOL HYDROCHLORIDE
     Indication: RESTING TREMOR
  9. TRAZODONE [Concomitant]
     Active Substance: TRAZODONE HYDROCHLORIDE
     Indication: DYSKINESIA
     Dosage: NIGHTLY
  10. TETRABENAZINE. [Concomitant]
     Active Substance: TETRABENAZINE
     Dates: start: 2011
  11. PROPRANOLOL HYDROCHLORIDE. [Suspect]
     Active Substance: PROPRANOLOL HYDROCHLORIDE
     Indication: POSTURAL TREMOR
     Dosage: 20 MG, TID (3/DAY)
     Route: 065
     Dates: start: 201501, end: 2015
  12. PROPRANOLOL HYDROCHLORIDE. [Suspect]
     Active Substance: PROPRANOLOL HYDROCHLORIDE
     Indication: TREMOR
     Dosage: 10 MG, UNK
     Dates: start: 201307
  13. QUETIAPINE. [Concomitant]
     Active Substance: QUETIAPINE
     Indication: DYSKINESIA
     Dates: start: 2011
  14. FLUOXETINE [Concomitant]
     Active Substance: FLUOXETINE HYDROCHLORIDE
     Indication: DYSKINESIA
  15. TETRABENAZINE. [Concomitant]
     Active Substance: TETRABENAZINE
     Indication: TARDIVE DYSKINESIA
     Dates: start: 201106, end: 2011

REACTIONS (5)
  - Product use issue [Unknown]
  - Inappropriate schedule of product administration [Unknown]
  - Depression [Unknown]
  - Drug ineffective for unapproved indication [Unknown]
  - Off label use [Unknown]

NARRATIVE: CASE EVENT DATE: 2015
